FAERS Safety Report 8198202-4 (Version None)
Quarter: 2012Q1

REPORT INFORMATION
  Report Type: 
  Country: None (occurrence: None)
  Receive Date: 20120309
  Receipt Date: 20120228
  Transmission Date: 20120608
  Serious: Yes (Hospitalization, Other)
  Sender: FDA-Public Use
  Company Number: PHHY2012FR018317

PATIENT
  Sex: Male

DRUGS (5)
  1. EXELON [Suspect]
     Dosage: 4.6 MG/24 HR
     Route: 062
     Dates: start: 20111215, end: 20111222
  2. PREVISCAN [Concomitant]
  3. HAVLANE [Concomitant]
  4. CORDARONE [Concomitant]
  5. MODOPAR [Concomitant]

REACTIONS (7)
  - SOMNOLENCE [None]
  - DYSPNOEA [None]
  - BRONCHIAL DISORDER [None]
  - ARRHYTHMIA [None]
  - SLEEP APNOEA SYNDROME [None]
  - ATRIAL FIBRILLATION [None]
  - HEART RATE INCREASED [None]
